FAERS Safety Report 17932524 (Version 1)
Quarter: 2020Q2

REPORT INFORMATION
  Report Type: Spontaneous
  Country: IN (occurrence: IN)
  Receive Date: 20200623
  Receipt Date: 20200623
  Transmission Date: 20200714
  Serious: Yes (Death)
  Sender: FDA-Public Use
  Company Number: IN-ROCHE-2626089

PATIENT
  Age: 46 Year
  Sex: Male

DRUGS (1)
  1. ACTEMRA [Suspect]
     Active Substance: TOCILIZUMAB
     Indication: COVID-19
     Dosage: SINGLE DOSE
     Route: 065

REACTIONS (4)
  - Off label use [Unknown]
  - Respiratory distress [Fatal]
  - Drug ineffective [Unknown]
  - Product use in unapproved indication [Unknown]
